FAERS Safety Report 11279166 (Version 1)
Quarter: 2015Q3

REPORT INFORMATION
  Report Type: Report from Study
  Country: AU (occurrence: None)
  Receive Date: 20150715
  Receipt Date: 20150715
  Transmission Date: 20151125
  Serious: Yes (Hospitalization)
  Sender: FDA-Public Use
  Company Number: 2015SGN01074

PATIENT
  Age: 62 Year
  Sex: Male
  Weight: 62.2 kg

DRUGS (12)
  1. DOXORUBICIN (DOXORUBICIN) INJECTION [Suspect]
     Active Substance: DOXORUBICIN
     Indication: HODGKIN^S DISEASE
     Route: 042
     Dates: start: 20150604, end: 20150604
  2. METRONIDAZOLE. [Concomitant]
     Active Substance: METRONIDAZOLE
  3. VINCRISTINE (VINCRISTINE) INJECTION [Suspect]
     Active Substance: VINCRISTINE
     Indication: HODGKIN^S DISEASE
     Route: 042
     Dates: start: 20150604, end: 20150604
  4. PARACETAMOL [Concomitant]
     Active Substance: ACETAMINOPHEN
  5. GENTAMICIN. [Concomitant]
     Active Substance: GENTAMICIN
  6. BRENTUXIMAB VEDOTIN (BRENTUXIMAB VEDOTIN) INJECTION [Suspect]
     Active Substance: BRENTUXIMAB VEDOTIN
     Indication: HODGKIN^S DISEASE
     Route: 042
     Dates: start: 20150604, end: 20150604
  7. VALACICLOVIR [Concomitant]
     Active Substance: VALACYCLOVIR HYDROCHLORIDE
  8. ONDANSETRON [Concomitant]
     Active Substance: ONDANSETRON
  9. MORPHINE [Concomitant]
     Active Substance: MORPHINE
  10. DACARBAZINE (DACARBAZINE) INJECTION [Suspect]
     Active Substance: DACARBAZINE
     Indication: HODGKIN^S DISEASE
     Route: 042
     Dates: start: 20150604, end: 20150604
  11. TAZOCIN (PIPERACILLIN SODIUM, TAZOBACTAM SODIUM) [Concomitant]
  12. G-CSF (GRANULOCYTE COLONY STIMULATING FACTOR) [Concomitant]
     Active Substance: GRANULOCYTE COLONY-STIMULATING FACTOR NOS

REACTIONS (5)
  - Abdominal pain lower [None]
  - Diverticular perforation [None]
  - Colonic abscess [None]
  - Groin pain [None]
  - Diverticulitis [None]

NARRATIVE: CASE EVENT DATE: 20150613
